FAERS Safety Report 9660361 (Version 1)
Quarter: 2013Q4

REPORT INFORMATION
  Report Type: Spontaneous
  Country: US (occurrence: US)
  Receive Date: 20131031
  Receipt Date: 20131031
  Transmission Date: 20140711
  Serious: Yes (Other)
  Sender: FDA-Public Use
  Company Number: US-NAPPMUNDI-USA-2011-0074503

PATIENT
  Age: 43 Year
  Sex: Male

DRUGS (1)
  1. OXYCONTIN TABLETS [Suspect]
     Indication: PAIN

REACTIONS (3)
  - Drug dependence [Recovering/Resolving]
  - Euphoric mood [Unknown]
  - Intentional drug misuse [Unknown]
